FAERS Safety Report 18024828 (Version 1)
Quarter: 2020Q3

REPORT INFORMATION
  Report Type: Spontaneous
  Country: US (occurrence: US)
  Receive Date: 20200714
  Receipt Date: 20200714
  Transmission Date: 20201103
  Serious: Yes (Life-Threatening, Hospitalization, Disabling, Other)
  Sender: FDA-Public Use
  Company Number: None

PATIENT
  Age: 29 Year
  Sex: Female

DRUGS (1)
  1. NEXPLANON [Suspect]
     Active Substance: ETONOGESTREL

REACTIONS (12)
  - Hypertension [None]
  - Ovarian cyst [None]
  - Headache [None]
  - Menorrhagia [None]
  - Exposure during pregnancy [None]
  - Depression [None]
  - Menstruation irregular [None]
  - Mood swings [None]
  - Complication of pregnancy [None]
  - Migraine [None]
  - Loss of consciousness [None]
  - Ill-defined disorder [None]
